FAERS Safety Report 6375785-8 (Version None)
Quarter: 2009Q3

REPORT INFORMATION
  Report Type: 
  Country: None (occurrence: None)
  Receive Date: 20090922
  Receipt Date: 20090922
  Transmission Date: 20100115
  Serious: No
  Sender: FDA-Public Use
  Company Number: None

PATIENT
  Age: 37 Year
  Sex: Male
  Weight: 101.1521 kg

DRUGS (4)
  1. OXCARBAZEPINE [Suspect]
     Indication: HEAD INJURY
     Dosage: 600 MG 3@ BED PO
     Route: 048
  2. OXCARBAZEPINE [Suspect]
     Indication: SLEEP DISORDER
     Dosage: 600 MG 3@ BED PO
     Route: 048
  3. TRILEPTAL [Concomitant]
  4. AND GENERIC [Concomitant]

REACTIONS (4)
  - DRUG EFFECT DECREASED [None]
  - ECONOMIC PROBLEM [None]
  - PRODUCT QUALITY ISSUE [None]
  - PRODUCT SUBSTITUTION ISSUE [None]
